FAERS Safety Report 21898078 (Version 1)
Quarter: 2023Q1

REPORT INFORMATION
  Report Type: Spontaneous
  Country: US (occurrence: None)
  Receive Date: 20230120
  Receipt Date: 20230120
  Transmission Date: 20230418
  Serious: Yes (Disabling)
  Sender: FDA-Public Use
  Company Number: None

PATIENT
  Age: 46 Year
  Sex: Female
  Weight: 49.5 kg

DRUGS (6)
  1. OCREVUS [Suspect]
     Active Substance: OCRELIZUMAB
     Indication: Multiple sclerosis
     Dates: start: 20190501, end: 20220118
  2. VITAMIN D [Concomitant]
     Active Substance: VITAMIN D NOS
  3. COD LIVER OIL [Concomitant]
  4. VITAMIN B COMPLEX [Concomitant]
     Active Substance: CYANOCOBALAMIN\DEXPANTHENOL\NIACINAMIDE\PYRIDOXINE HYDROCHLORIDE\RIBOFLAVIN 5^-PHOSPHATE SODIUM\THIA
  5. MAGNESIUM [Concomitant]
  6. BIOTIN [Concomitant]
     Active Substance: BIOTIN

REACTIONS (10)
  - Muscle spasms [None]
  - Arthralgia [None]
  - Hypoaesthesia [None]
  - Muscular weakness [None]
  - Peroneal nerve palsy [None]
  - Gait disturbance [None]
  - Menstrual disorder [None]
  - Heavy menstrual bleeding [None]
  - Infusion related reaction [None]
  - General symptom [None]

NARRATIVE: CASE EVENT DATE: 20190501
